FAERS Safety Report 14033096 (Version 2)
Quarter: 2017Q4

REPORT INFORMATION
  Report Type: Report from Study
  Country: US (occurrence: US)
  Receive Date: 20171002
  Receipt Date: 20171229
  Transmission Date: 20180321
  Serious: Yes (Hospitalization, Other)
  Sender: FDA-Public Use
  Company Number: US-ARIAD PHARMACEUTICALS, INC-2017US008968

PATIENT
  Sex: Male

DRUGS (2)
  1. PONATINIB [Suspect]
     Active Substance: PONATINIB
     Dosage: 30 MG, QD
     Route: 048
  2. PONATINIB [Suspect]
     Active Substance: PONATINIB
     Indication: CHRONIC MYELOID LEUKAEMIA
     Dosage: 45 MG, QD
     Route: 048
     Dates: start: 20170908

REACTIONS (9)
  - Pneumonia [Unknown]
  - Arthralgia [Unknown]
  - Blood pressure abnormal [Unknown]
  - Dehydration [Unknown]
  - Hepatic enzyme increased [Unknown]
  - Pruritus [Unknown]
  - Pancreatitis [Unknown]
  - Malaise [Unknown]
  - Rash [Unknown]
